FAERS Safety Report 13226542 (Version 1)
Quarter: 2017Q1

REPORT INFORMATION
  Report Type: Spontaneous
  Country: BR (occurrence: BR)
  Receive Date: 20170213
  Receipt Date: 20170213
  Transmission Date: 20170428
  Serious: Yes (Other)
  Sender: FDA-Public Use
  Company Number: BR-JNJFOC-20170208893

PATIENT
  Age: 60 Year
  Sex: Male
  Weight: 77 kg

DRUGS (5)
  1. RIBAVIRINA [Suspect]
     Active Substance: RIBAVIRIN
     Indication: HEPATITIS C
     Route: 065
     Dates: start: 20160617, end: 20160729
  2. SOFOSBUVIR [Suspect]
     Active Substance: SOFOSBUVIR
     Indication: HEPATITIS C
     Dosage: THERAPY DURATION: 12 WEEKS
     Route: 065
     Dates: start: 20160507, end: 20160729
  3. SIMEPREVIR [Suspect]
     Active Substance: SIMEPREVIR
     Indication: HEPATITIS C
     Dosage: THERAPY DURATION: 12 WEEKS
     Route: 065
     Dates: start: 20160507, end: 20160729
  4. RIBAVIRINA [Suspect]
     Active Substance: RIBAVIRIN
     Indication: HEPATITIS C
     Dosage: STRENGTH: 250MG; TWO TABLETS IN MORNING AND TWO TABLETS IN EVENING??THERAPY DURATION: 12 WEEKS
     Route: 065
     Dates: start: 20160507, end: 20160616
  5. VALSARTAN AND HYDROCHLOROTHIAZIDE [Concomitant]
     Active Substance: HYDROCHLOROTHIAZIDE\VALSARTAN
     Indication: HYPERTENSION
     Dosage: DOSE: 80/12.5 MG
     Route: 065

REACTIONS (3)
  - Anaemia [Recovering/Resolving]
  - Dizziness [Recovered/Resolved]
  - Fatigue [Recovered/Resolved]

NARRATIVE: CASE EVENT DATE: 201605
